FAERS Safety Report 19266569 (Version 1)
Quarter: 2021Q2

REPORT INFORMATION
  Report Type: Report from Study
  Country: CO (occurrence: CO)
  Receive Date: 20210517
  Receipt Date: 20210517
  Transmission Date: 20210717
  Serious: Yes (Death, Hospitalization)
  Sender: FDA-Public Use
  Company Number: CO-COLLEGIUM PHARMACEUTICAL, INC.-2021CGM00549

PATIENT
  Age: 68 Year
  Sex: Female

DRUGS (1)
  1. TAPENTADOL [Suspect]
     Active Substance: TAPENTADOL
     Indication: PAIN
     Dosage: 1 DF, 1X/DAY
     Route: 048
     Dates: start: 20210330

REACTIONS (2)
  - Adverse event [Unknown]
  - Procedural complication [Fatal]
